FAERS Safety Report 8250824-8 (Version None)
Quarter: 2012Q2

REPORT INFORMATION
  Report Type: 
  Country: None (occurrence: None)
  Receive Date: 20120402
  Receipt Date: 20120323
  Transmission Date: 20120825
  Serious: Yes (Death)
  Sender: FDA-Public Use
  Company Number: UA-ROCHE-CID000000001986277

PATIENT
  Sex: Female
  Weight: 65 kg

DRUGS (2)
  1. VINFLUNINE [Suspect]
     Indication: BREAST CANCER
     Route: 042
     Dates: start: 20100331, end: 20100420
  2. XELODA [Suspect]
     Indication: BREAST CANCER
     Dosage: FRONM DAY 1 TO DAY 14 EVERY 3 WEEKS
     Route: 048
     Dates: start: 20100331, end: 20100430

REACTIONS (2)
  - SUDDEN DEATH [None]
  - PANCYTOPENIA [None]
